FAERS Safety Report 14229388 (Version 1)
Quarter: 2017Q4

REPORT INFORMATION
  Report Type: Spontaneous
  Country: US (occurrence: None)
  Receive Date: 20171125
  Receipt Date: 20171125
  Transmission Date: 20180321
  Serious: Yes (Hospitalization)
  Sender: FDA-Public Use
  Company Number: None

PATIENT
  Age: 62 Year
  Sex: Male
  Weight: 64 kg

DRUGS (2)
  1. MELOXICAM. [Suspect]
     Active Substance: MELOXICAM
     Indication: RHEUMATOID ARTHRITIS
     Dates: start: 20151105, end: 20170921
  2. MELOXICAM. [Suspect]
     Active Substance: MELOXICAM
     Indication: CORONARY ARTERY DISEASE
     Dates: start: 20151105, end: 20170921

REACTIONS (2)
  - Gastric haemorrhage [None]
  - Haemoptysis [None]

NARRATIVE: CASE EVENT DATE: 20170922
